FAERS Safety Report 24672430 (Version 2)
Quarter: 2025Q2

REPORT INFORMATION
  Report Type: Report from Study
  Country: US (occurrence: US)
  Receive Date: 20241127
  Receipt Date: 20250604
  Transmission Date: 20250717
  Serious: No
  Sender: SANOFI AVENTIS
  Company Number: US-SANOFI-02310227

PATIENT
  Age: 74 Year
  Sex: Female

DRUGS (13)
  1. DUPIXENT [Suspect]
     Active Substance: DUPILUMAB
     Indication: Asthma
     Route: 058
  2. DUPIXENT [Suspect]
     Active Substance: DUPILUMAB
     Indication: Hypersensitivity
     Dosage: 300 MG, QOW
     Route: 058
  3. DUPIXENT [Suspect]
     Active Substance: DUPILUMAB
     Indication: Nasal polyps
     Route: 058
     Dates: start: 20250527, end: 20250527
  4. ALBUTEROL SULFATE [Concomitant]
     Active Substance: ALBUTEROL SULFATE
     Route: 065
  5. VITAMIN B COMPLEX [Concomitant]
     Active Substance: CYANOCOBALAMIN\DEXPANTHENOL\NIACINAMIDE\PYRIDOXINE HYDROCHLORIDE\RIBOFLAVIN 5^-PHOSPHATE SODIUM\THIA
     Route: 065
  6. D3 5000 [Concomitant]
     Route: 065
  7. ZINC [Concomitant]
     Active Substance: ZINC
     Route: 065
  8. MAGNESIUM OXIDE [Concomitant]
     Active Substance: MAGNESIUM OXIDE
     Route: 065
  9. VITAMINS NOS [Concomitant]
     Active Substance: VITAMINS
     Route: 065
  10. RESTASIS [Concomitant]
     Active Substance: CYCLOSPORINE
     Route: 065
  11. COZAAR [Concomitant]
     Active Substance: LOSARTAN POTASSIUM
  12. NORVASC [Concomitant]
     Active Substance: AMLODIPINE BESYLATE
  13. PRAVACHOL [Concomitant]
     Active Substance: PRAVASTATIN SODIUM

REACTIONS (7)
  - Pain [Unknown]
  - Arthralgia [Unknown]
  - Nasal polyps [Unknown]
  - Condition aggravated [Unknown]
  - Product use in unapproved indication [Unknown]
  - Accidental exposure to product [Unknown]
  - Exposure via skin contact [Unknown]

NARRATIVE: CASE EVENT DATE: 20240101
